FAERS Safety Report 4549704-0 (Version None)
Quarter: 2005Q1

REPORT INFORMATION
  Report Type: 
  Country: None (occurrence: None)
  Receive Date: 20050110
  Receipt Date: 20041228
  Transmission Date: 20050727
  Serious: Yes (Other)
  Sender: FDA-Public Use
  Company Number: 2004119545

PATIENT
  Sex: Female

DRUGS (1)
  1. CELEBREX [Suspect]
     Indication: BONE INFECTION
     Dates: start: 20000101

REACTIONS (3)
  - ARTHRITIS [None]
  - MYOCARDIAL INFARCTION [None]
  - SHOULDER OPERATION [None]
